FAERS Safety Report 6744582-3 (Version None)
Quarter: 2010Q2

REPORT INFORMATION
  Report Type: 
  Country: None (occurrence: None)
  Receive Date: 20100527
  Receipt Date: 20100524
  Transmission Date: 20101027
  Serious: Yes (Life-Threatening, Other)
  Sender: FDA-Public Use
  Company Number: PHHY2010US33655

PATIENT
  Sex: Female

DRUGS (2)
  1. CARBAMAZEPINE [Suspect]
     Indication: PAIN
     Dosage: 100 MG, UNK
     Dates: start: 20100414
  2. CARBAMAZEPINE [Suspect]
     Dosage: 200 MG, UNK

REACTIONS (6)
  - FATIGUE [None]
  - HYPERACUSIS [None]
  - MALAISE [None]
  - MIGRAINE [None]
  - NAUSEA [None]
  - SUICIDAL IDEATION [None]
